FAERS Safety Report 8443691 (Version 2)
Quarter: 2012Q4

REPORT INFORMATION
  Report Type: Spontaneous
  Country: IT (occurrence: None)
  Receive Date: 20120227
  Receipt Date: 20120924
  Transmission Date: 20130627
  Serious: Yes (Hospitalization, Disabling)
  Sender: FDA-Public Use
  Company Number: DSA_55185_2012

PATIENT
  Age: 46 Year
  Sex: Female

DRUGS (7)
  1. WELLBUTRIN [Suspect]
     Indication: WEIGHT CONTROL
     Route: 048
     Dates: start: 20111101, end: 2012
  2. FUROSEMIDE [Suspect]
     Indication: WEIGHT CONTROL
     Route: 048
     Dates: start: 20111101, end: 2012
  3. METFORMIN HYDROCHLORIDE [Suspect]
     Indication: WEIGHT CONTROL
     Route: 048
     Dates: start: 20111101, end: 2012
  4. BLADDERWRACK- FUCUS VESICULOSUS DRY EXTRACT [Suspect]
     Indication: WEIGHT CONTROL
     Route: 048
     Dates: start: 20111101, end: 2012
  5. OXEDRINE [Suspect]
     Indication: WEIGHT CONTROL
     Route: 048
     Dates: start: 20111101, end: 2012
  6. EPHEDRINE [Suspect]
     Indication: WEIGHT CONTROL
     Route: 048
     Dates: start: 20111101, end: 2012
  7. DEANOL [Suspect]
     Indication: WEIGHT CONTROL
     Route: 048
     Dates: start: 20111101, end: 2012

REACTIONS (2)
  - Ischaemic stroke [None]
  - Aphasia [None]
